FAERS Safety Report 15535942 (Version 2)
Quarter: 2018Q4

REPORT INFORMATION
  Report Type: Report from Study
  Country: CA (occurrence: CA)
  Receive Date: 20181022
  Receipt Date: 20181211
  Transmission Date: 20190205
  Serious: Yes (Hospitalization, Other)
  Sender: FDA-Public Use
  Company Number: CA-BRISTOL-MYERS SQUIBB COMPANY-BMS-2018-076443

PATIENT
  Age: 48 Year
  Sex: Female

DRUGS (3)
  1. NIVOLUMAB [Suspect]
     Active Substance: NIVOLUMAB
     Indication: RENAL CELL CARCINOMA
     Dosage: 340 MG, Q3WK
     Route: 065
     Dates: start: 20180803
  2. YERVOY [Suspect]
     Active Substance: IPILIMUMAB
     Indication: RENAL CELL CARCINOMA
     Dosage: 114 MG, Q3WK
     Route: 065
     Dates: start: 20180803
  3. TSH [Concomitant]
     Indication: PRODUCT USED FOR UNKNOWN INDICATION
     Dosage: UNK
     Route: 065

REACTIONS (13)
  - Migraine [Recovered/Resolved]
  - Night sweats [Unknown]
  - Product use in unapproved indication [Unknown]
  - Diarrhoea [Unknown]
  - Fatigue [Unknown]
  - Adrenal insufficiency [Recovered/Resolved]
  - Headache [Unknown]
  - Fungal infection [Unknown]
  - Constipation [Unknown]
  - Weight decreased [Unknown]
  - Blood creatinine decreased [Unknown]
  - Infusion related reaction [Unknown]
  - Cough [Unknown]

NARRATIVE: CASE EVENT DATE: 20180905
